FAERS Safety Report 21951707 (Version 1)
Quarter: 2023Q1

REPORT INFORMATION
  Report Type: Spontaneous
  Country: US (occurrence: None)
  Receive Date: 20230203
  Receipt Date: 20230203
  Transmission Date: 20230417
  Serious: Yes (Life-Threatening, Hospitalization)
  Sender: FDA-Public Use
  Company Number: None

PATIENT
  Sex: Male

DRUGS (1)
  1. IMATINIB [Suspect]
     Active Substance: IMATINIB
     Dosage: FREQUENCY : DAILY;?
     Route: 048

REACTIONS (5)
  - Chest pain [None]
  - Haemoptysis [None]
  - Headache [None]
  - Product substitution issue [None]
  - Therapy interrupted [None]

NARRATIVE: CASE EVENT DATE: 20230202
